FAERS Safety Report 25597551 (Version 1)
Quarter: 2025Q3

REPORT INFORMATION
  Report Type: Spontaneous
  Country: CN (occurrence: CN)
  Receive Date: 20250723
  Receipt Date: 20250723
  Transmission Date: 20251020
  Serious: Yes (Life-Threatening, Other)
  Sender: FRESENIUS KABI
  Company Number: CN-FreseniusKabi-FK202510027

PATIENT
  Age: 15 Year
  Sex: Male
  Weight: 48.0 kg

DRUGS (4)
  1. PROPOFOL [Suspect]
     Active Substance: PROPOFOL
     Indication: Induction of anaesthesia
     Dosage: FOA: INJECTION?ROA: INTRAVENOUS INJECTION
     Dates: start: 20250717, end: 20250717
  2. MIDAZOLAM HYDROCHLORIDE [Suspect]
     Active Substance: MIDAZOLAM HYDROCHLORIDE
     Indication: Induction of anaesthesia
     Dosage: INJECTION?INTRAVENOUS INJECTION
     Dates: start: 20250717, end: 20250717
  3. VECURONIUM BROMIDE FOR INJECTION [Suspect]
     Active Substance: VECURONIUM BROMIDE
     Indication: Induction of anaesthesia
     Dosage: POWDER FOR INJECTION ?INTRAVENOUS INJECTION
     Dates: start: 20250717, end: 20250717
  4. SUFENTANIL CITRATE [Concomitant]
     Active Substance: SUFENTANIL CITRATE
     Indication: Anaesthesia
     Dosage: INJECTION ?INTRAVENOUS INJECTION
     Dates: start: 20250717, end: 20250717

REACTIONS (2)
  - Macule [Not Recovered/Not Resolved]
  - Cardiac arrest [Recovered/Resolved]

NARRATIVE: CASE EVENT DATE: 20250717
